FAERS Safety Report 16936745 (Version 1)
Quarter: 2019Q4

REPORT INFORMATION
  Report Type: Report from Study
  Country: US (occurrence: US)
  Receive Date: 20191018
  Receipt Date: 20191018
  Transmission Date: 20200122
  Serious: Yes (Hospitalization, Other)
  Sender: FDA-Public Use
  Company Number: US-AMGEN-USACT2019170483

PATIENT
  Age: 21 Year
  Sex: Male
  Weight: 53.9 kg

DRUGS (11)
  1. BLINATUMOMAB [Suspect]
     Active Substance: BLINATUMOMAB
     Indication: B PRECURSOR TYPE ACUTE LEUKAEMIA
     Dosage: 15 MICROGRAM/SQ. METER, QD IV CONTINUOUS INFUSION ON DAYS 1-28
     Route: 042
  2. BLINATUMOMAB [Suspect]
     Active Substance: BLINATUMOMAB
     Dosage: 15 MICROGRAM/SQ. METER, QD IV CONTINUOUS INFUSION ON DAYS 1-28
     Route: 042
     Dates: start: 20190722
  3. CYCLOPHOSPHAMIDE. [Suspect]
     Active Substance: CYCLOPHOSPHAMIDE
     Indication: B PRECURSOR TYPE ACUTE LEUKAEMIA
     Dosage: 440 MILLIGRAM/SQ. METER OVER 15-30 MIN ON DAYS 15-19
     Route: 042
  4. ETOPOSIDE. [Suspect]
     Active Substance: ETOPOSIDE
     Indication: B PRECURSOR TYPE ACUTE LEUKAEMIA
     Dosage: 100 MILLIGRAM/SQ. METER OVER 1-2 HRS ON DAYS 15-19
     Route: 042
  5. MERCAPTOPURINE. [Suspect]
     Active Substance: MERCAPTOPURINE
     Indication: B PRECURSOR TYPE ACUTE LEUKAEMIA
     Dosage: 75 MILLIGRAM/SQ. METER ON DAYS 1-42
     Route: 048
  6. PEGASPARGASE [Suspect]
     Active Substance: PEGASPARGASE
     Indication: B PRECURSOR TYPE ACUTE LEUKAEMIA
     Dosage: 2500 IU/M2 OVER 1-2 HRS ON DAY 9 OR 10
     Route: 042
  7. THIOGUANINE [Suspect]
     Active Substance: THIOGUANINE
     Indication: B PRECURSOR TYPE ACUTE LEUKAEMIA
     Dosage: 40 MILLIGRAM/SQ. METER, QD ON DAYS 43-49
     Route: 048
  8. CYTARABINE. [Suspect]
     Active Substance: CYTARABINE
     Indication: B PRECURSOR TYPE ACUTE LEUKAEMIA
     Dosage: 50 MILLIGRAM/SQ. METER IV OVER 1-30 MINUTES OR SQ ON DAYS 44-47, 51-54
     Route: 065
  9. DEXAMETHASONE. [Suspect]
     Active Substance: DEXAMETHASONE
     Indication: B PRECURSOR TYPE ACUTE LEUKAEMIA
     Dosage: 3 MILLIGRAM/SQ. METER, PO OR IV BID ON DAYS 1-5
     Route: 065
  10. METHOTREXATE. [Suspect]
     Active Substance: METHOTREXATE
     Indication: B PRECURSOR TYPE ACUTE LEUKAEMIA
     Dosage: 1000 MILLIGRAM/SQ. METER OVER 36 HRS ON DAY 8
     Route: 042
  11. VINCRISTINE [Suspect]
     Active Substance: VINCRISTINE
     Indication: B PRECURSOR TYPE ACUTE LEUKAEMIA
     Dosage: 1.5 MILLIGRAM/SQ. METER (MAX. DOSE: 2 MG) IV ON DAY 1
     Route: 042

REACTIONS (6)
  - Aphonia [Unknown]
  - Dysarthria [Unknown]
  - Confusional state [Unknown]
  - Disturbance in attention [Unknown]
  - Amnesia [Unknown]
  - Cognitive disorder [Unknown]

NARRATIVE: CASE EVENT DATE: 20190723
